FAERS Safety Report 24527969 (Version 1)
Quarter: 2024Q4

REPORT INFORMATION
  Report Type: Spontaneous
  Country: GB (occurrence: GB)
  Receive Date: 20241021
  Receipt Date: 20241021
  Transmission Date: 20250114
  Serious: Yes (Hospitalization, Other)
  Sender: Haleon PLC
  Company Number: GB-MHRA-TPP23845780C7058562YC1729097830249

PATIENT
  Age: 23 Year
  Sex: Female
  Weight: 94 kg

DRUGS (7)
  1. ORLISTAT [Suspect]
     Active Substance: ORLISTAT
     Indication: Ill-defined disorder
     Dosage: TAKE ONE 3 TIMES/DAY WITH MEALS TO SUPPORT WEIG...?CAPSULES
     Dates: start: 20240921, end: 20241015
  2. NICORETTE [Concomitant]
     Active Substance: NICOTINE
     Indication: Ill-defined disorder
     Dosage: USE AS DIRECTED
     Dates: start: 20240927
  3. HALOPERIDOL [Concomitant]
     Active Substance: HALOPERIDOL
     Indication: Ill-defined disorder
     Dosage: ( 1.5ML ) AS DIREC...
     Dates: start: 20240116, end: 20240923
  4. NICOTINELL [Concomitant]
     Active Substance: NICOTINE
     Indication: Ex-tobacco user
     Dosage: USE DAILY FOR SMOKING CESSATION
     Dates: start: 20240927
  5. LORAZEPAM [Concomitant]
     Active Substance: LORAZEPAM
     Indication: Ill-defined disorder
     Dosage: .
     Dates: start: 20240125
  6. FLUOXETINE [Concomitant]
     Active Substance: FLUOXETINE HYDROCHLORIDE
     Indication: Ill-defined disorder
     Dosage: IN THE MORNING TO RAISE...
     Dates: start: 20240116
  7. ARIPIPRAZOLE [Concomitant]
     Active Substance: ARIPIPRAZOLE
     Indication: Ill-defined disorder
     Dosage: IN THE MORNING FOR 7 DAYS THEN INCREAS...
     Dates: start: 20240923

REACTIONS (1)
  - Pancreatitis acute [Recovering/Resolving]

NARRATIVE: CASE EVENT DATE: 20241016
